FAERS Safety Report 8807865 (Version 1)
Quarter: 2012Q4

REPORT INFORMATION
  Report Type: 
  Country: IE (occurrence: IE)
  Receive Date: 20120925
  Receipt Date: 20120925
  Transmission Date: 20130627
  Serious: Yes (Hospitalization, Other)
  Sender: FDA-Public Use
  Company Number: IE-GLAXOSMITHKLINE-B0832766A

PATIENT
  Age: 57 Year
  Sex: Female

DRUGS (14)
  1. NEOTIGASON [Suspect]
     Indication: ERYTHRODERMIC PSORIASIS
     Route: 065
     Dates: start: 20060110
  2. CICLOSPORIN [Suspect]
     Indication: PSORIASIS
     Route: 065
     Dates: start: 200701, end: 200709
  3. HUMIRA [Suspect]
     Indication: PRODUCT USED FOR UNKNOWN INDICATION
     Dosage: 40MG Weekly
     Route: 058
     Dates: start: 20080501, end: 20100405
  4. ELTROXIN [Concomitant]
     Indication: HYPOTHYROIDISM
  5. ISTIN [Concomitant]
     Indication: HYPERTENSION
  6. LEXAPRO [Concomitant]
     Indication: DEPRESSION
  7. IXPRIM [Concomitant]
     Indication: OSTEOARTHRITIS
  8. CARDURA [Concomitant]
     Indication: HYPERTENSION
  9. LYRICA [Concomitant]
     Indication: OSTEOARTHRITIS
  10. BRUFEN [Concomitant]
     Indication: OSTEOARTHRITIS
  11. DUROGESIC [Concomitant]
     Indication: OSTEOARTHRITIS
  12. EFEXOR XL [Concomitant]
     Indication: DEPRESSION
  13. FLUCLOXACILLIN [Concomitant]
     Indication: CELLULITIS
  14. CALVEPEN [Concomitant]
     Indication: CELLULITIS

REACTIONS (1)
  - Endometrial cancer [Not Recovered/Not Resolved]
